FAERS Safety Report 23704698 (Version 1)
Quarter: 2024Q2

REPORT INFORMATION
  Report Type: Spontaneous
  Country: US (occurrence: US)
  Receive Date: 20240404
  Receipt Date: 20240404
  Transmission Date: 20240716
  Serious: No
  Sender: FDA-Public Use
  Company Number: US-SA-SAC20240328000572

PATIENT
  Age: 26 Year
  Sex: Female
  Weight: 54.4 kg

DRUGS (1)
  1. DUPIXENT [Suspect]
     Active Substance: DUPILUMAB
     Indication: Nasal polyps
     Dosage: 300MG QOW
     Route: 058
     Dates: start: 202309

REACTIONS (1)
  - Dry skin [Recovered/Resolved]

NARRATIVE: CASE EVENT DATE: 20230901
